FAERS Safety Report 5106974-8 (Version None)
Quarter: 2006Q3

REPORT INFORMATION
  Report Type: 
  Country: None (occurrence: None)
  Receive Date: 20060913
  Receipt Date: 20060831
  Transmission Date: 20061208
  Serious: Yes (Disabling)
  Sender: FDA-Public Use
  Company Number: T200600967

PATIENT
  Age: 62 Year
  Sex: Female

DRUGS (1)
  1. SODIUM IODIDE I 131 [Suspect]
     Indication: ISOTOPE THERAPY TO THYROID
     Dosage: 22.8 GBQ, (7.6 GBQ X 3),
     Dates: start: 19990901, end: 20000301

REACTIONS (10)
  - DYSURIA [None]
  - HYPOAESTHESIA [None]
  - HYPOTHERMIA [None]
  - MOTOR DYSFUNCTION [None]
  - MUSCULAR WEAKNESS [None]
  - RADIATION MYELOPATHY [None]
  - SENSORY DISTURBANCE [None]
  - SPINAL COLUMN STENOSIS [None]
  - SPINAL CORD COMPRESSION [None]
  - SPINAL LIGAMENT OSSIFICATION [None]
